FAERS Safety Report 17079704 (Version 1)
Quarter: 2019Q4

REPORT INFORMATION
  Report Type: Spontaneous
  Country: US (occurrence: US)
  Receive Date: 20191127
  Receipt Date: 20191127
  Transmission Date: 20200122
  Serious: No
  Sender: FDA-Public Use
  Company Number: US-AUROBINDO-AUR-APL-2018-052701

PATIENT
  Sex: Female

DRUGS (1)
  1. LOSARTAN POTASSIUM TABLETS USP 100MG [Suspect]
     Active Substance: LOSARTAN POTASSIUM
     Indication: HYPERTENSION
     Dosage: UNK
     Route: 065
     Dates: start: 20180822

REACTIONS (4)
  - Feeling abnormal [Recovering/Resolving]
  - Drug ineffective [Recovered/Resolved]
  - Anxiety [Recovering/Resolving]
  - Dizziness [Recovering/Resolving]

NARRATIVE: CASE EVENT DATE: 20180913
